FAERS Safety Report 13040317 (Version 4)
Quarter: 2018Q4

REPORT INFORMATION
  Report Type: Spontaneous
  Country: US (occurrence: US)
  Receive Date: 20161219
  Receipt Date: 20181113
  Transmission Date: 20190204
  Serious: Yes (Life-Threatening, Hospitalization)
  Sender: FDA-Public Use
  Company Number: US-BRACCO-014216

PATIENT
  Age: 63 Year
  Sex: Male

DRUGS (3)
  1. NORMAL SALINE [Concomitant]
     Active Substance: SODIUM CHLORIDE
     Dosage: 10 ML, UNK
     Route: 042
     Dates: start: 20161214, end: 20161214
  2. LUMASON [Suspect]
     Active Substance: SULFUR HEXAFLUORIDE
     Dosage: 2.4 ML, TOTAL
     Route: 042
     Dates: start: 20161214, end: 20161214
  3. LUMASON [Suspect]
     Active Substance: SULFUR HEXAFLUORIDE
     Indication: ULTRASOUND SCAN
     Dosage: 2.4 ML, TOTAL
     Route: 042
     Dates: start: 20161214, end: 20161214

REACTIONS (1)
  - Anaphylactic reaction [Recovered/Resolved]

NARRATIVE: CASE EVENT DATE: 20161214
